FAERS Safety Report 17992643 (Version 2)
Quarter: 2021Q2

REPORT INFORMATION
  Report Type: Spontaneous
  Country: CH (occurrence: CH)
  Receive Date: 20200708
  Receipt Date: 20210628
  Transmission Date: 20210717
  Serious: Yes (Other)
  Sender: FDA-Public Use
  Company Number: CH-TEVA-2020-CH-1796718

PATIENT
  Age: 54 Year
  Sex: Male

DRUGS (4)
  1. DANAZOL. [Suspect]
     Active Substance: DANAZOL
     Indication: PULMONARY FIBROSIS
     Route: 065
  2. MYCOPHENOLATE MOFETIL. [Suspect]
     Active Substance: MYCOPHENOLATE MOFETIL
     Indication: IMMUNOSUPPRESSANT DRUG THERAPY
     Route: 065
  3. PREDNISONE. [Suspect]
     Active Substance: PREDNISONE
     Indication: IMMUNOSUPPRESSANT DRUG THERAPY
     Route: 065
  4. TACROLIMUS. [Suspect]
     Active Substance: TACROLIMUS
     Indication: IMMUNOSUPPRESSANT DRUG THERAPY
     Route: 065

REACTIONS (4)
  - Lymphopenia [Recovering/Resolving]
  - Chronic kidney disease [Recovering/Resolving]
  - Infection [Recovered/Resolved]
  - Normocytic anaemia [Recovering/Resolving]
